FAERS Safety Report 24770971 (Version 1)
Quarter: 2024Q4

REPORT INFORMATION
  Report Type: Spontaneous
  Country: RU (occurrence: RU)
  Receive Date: 20241224
  Receipt Date: 20241224
  Transmission Date: 20250115
  Serious: Yes (Other)
  Sender: BAYER HEALTHCARE PHARMACEUTICALS INC.
  Company Number: RU-BAYER-2024A178988

PATIENT
  Age: 39 Year
  Sex: Female

DRUGS (1)
  1. YAZ [Suspect]
     Active Substance: DROSPIRENONE\ETHINYL ESTRADIOL
     Route: 048

REACTIONS (8)
  - Embolism [None]
  - Pneumonia [Recovered/Resolved]
  - Pulmonary embolism [None]
  - Haemoptysis [Recovered/Resolved]
  - Respiratory tract infection viral [None]
  - Chest pain [None]
  - Malaise [None]
  - Prescription drug used without a prescription [None]
